FAERS Safety Report 18299636 (Version 1)
Quarter: 2020Q3

REPORT INFORMATION
  Report Type: Report from Study
  Country: SA (occurrence: SA)
  Receive Date: 20200923
  Receipt Date: 20200923
  Transmission Date: 20201103
  Serious: Yes (Other)
  Sender: FDA-Public Use
  Company Number: SA-CELLTRION INC.-2020SA028071

PATIENT

DRUGS (27)
  1. AZATHIOPRINE. [Concomitant]
     Active Substance: AZATHIOPRINE
     Indication: CROHN^S DISEASE
     Route: 048
  2. DIPHENHYDRAMINE. [Concomitant]
     Active Substance: DIPHENHYDRAMINE
     Dosage: 25 MG. 1 IN 1 D
     Route: 048
     Dates: start: 20200107, end: 20200107
  3. REMSIMA [Suspect]
     Active Substance: INFLIXIMAB
     Dosage: 1000 MG
     Route: 042
     Dates: start: 20191112, end: 20191112
  4. DIPHENHYDRAMINE. [Concomitant]
     Active Substance: DIPHENHYDRAMINE
     Dosage: 50 MG. 1 IN 1 D
     Route: 048
     Dates: start: 20190528, end: 20190528
  5. DIPHENHYDRAMINE. [Concomitant]
     Active Substance: DIPHENHYDRAMINE
     Dosage: 50 MG. 1 IN 1 D
     Route: 048
     Dates: start: 20191112, end: 20191112
  6. DIPHENHYDRAMINE. [Concomitant]
     Active Substance: DIPHENHYDRAMINE
     Dosage: 25 MG. 1 IN 1 D
     Route: 048
     Dates: start: 20200303, end: 20200303
  7. FENTANYL CITRATE. [Concomitant]
     Active Substance: FENTANYL CITRATE
     Indication: COLONOSCOPY
     Dosage: 50 MICROGRAM, 1 IN 1 D
     Route: 040
     Dates: start: 20190827, end: 20190827
  8. ERGOCALCIFEROL. [Concomitant]
     Active Substance: ERGOCALCIFEROL
     Indication: VITAMIN SUPPLEMENTATION
     Dosage: 5000 IU, 1 IN 1 D
     Route: 048
     Dates: start: 20190415, end: 20190615
  9. REMSIMA [Suspect]
     Active Substance: INFLIXIMAB
     Indication: CROHN^S DISEASE
     Dosage: 1110 MG
     Route: 042
     Dates: start: 20190528, end: 20190528
  10. DIPHENHYDRAMINE. [Concomitant]
     Active Substance: DIPHENHYDRAMINE
     Indication: PREMEDICATION
     Dosage: 50 MG. 1 IN 1 D
     Route: 048
     Dates: start: 20190416, end: 20190416
  11. CHOLECALCIFEROL [Concomitant]
     Active Substance: CHOLECALCIFEROL
     Indication: OSTEOPOROSIS PROPHYLAXIS
     Dosage: 3214.2857 IU (45000 IU, 1 IN 2 WK
     Route: 048
     Dates: start: 20190805
  12. REMSIMA [Suspect]
     Active Substance: INFLIXIMAB
     Dosage: VISIT 8
     Dates: start: 20200428, end: 20200428
  13. ACETAMINOPHEN. [Concomitant]
     Active Substance: ACETAMINOPHEN
     Dosage: 1000 MG, 1 IN 1 D
     Route: 048
     Dates: start: 20200303, end: 20200303
  14. ACETAMINOPHEN. [Concomitant]
     Active Substance: ACETAMINOPHEN
     Dosage: 1000 MG, 1 IN 1 D
     Route: 048
     Dates: start: 20190723, end: 20190723
  15. ACETAMINOPHEN. [Concomitant]
     Active Substance: ACETAMINOPHEN
     Dosage: 1000 MG, 1 IN 1 D
     Route: 048
     Dates: start: 20191112, end: 20191112
  16. DIPHENHYDRAMINE. [Concomitant]
     Active Substance: DIPHENHYDRAMINE
     Dosage: 50 MG. 1 IN 1 D
     Route: 048
     Dates: start: 20190917, end: 20190917
  17. REMSIMA [Suspect]
     Active Substance: INFLIXIMAB
     Dosage: 1000 MG
     Route: 042
     Dates: start: 20200303, end: 20200303
  18. ACETAMINOPHEN. [Concomitant]
     Active Substance: ACETAMINOPHEN
     Indication: PREMEDICATION
     Dosage: 1000 MG, 1 IN 1 D
     Route: 048
     Dates: start: 20190416, end: 20190416
  19. ACETAMINOPHEN. [Concomitant]
     Active Substance: ACETAMINOPHEN
     Dosage: 1000 MG, 1 IN 1 D
     Route: 048
     Dates: start: 20190528, end: 20190528
  20. ACETAMINOPHEN. [Concomitant]
     Active Substance: ACETAMINOPHEN
     Dosage: 1000 MG, 1 IN 1 D
     Route: 048
     Dates: start: 20190917, end: 20190917
  21. DIPHENHYDRAMINE. [Concomitant]
     Active Substance: DIPHENHYDRAMINE
     Dosage: 50 MG. 1 IN 1 D
     Route: 048
     Dates: start: 20190723, end: 20190723
  22. REMSIMA [Suspect]
     Active Substance: INFLIXIMAB
     Dosage: 1000 MG
     Route: 042
     Dates: start: 20190723, end: 20190723
  23. REMSIMA [Suspect]
     Active Substance: INFLIXIMAB
     Dosage: 1000 MG
     Route: 042
     Dates: start: 20190917, end: 20190917
  24. REMSIMA [Suspect]
     Active Substance: INFLIXIMAB
     Dosage: 1000 MG
     Route: 042
     Dates: start: 20200107, end: 20200107
  25. ACETAMINOPHEN. [Concomitant]
     Active Substance: ACETAMINOPHEN
     Dosage: 1000 MG, 1 IN 1 D
     Route: 048
     Dates: start: 20200107, end: 20200107
  26. MIDAZOLAM. [Concomitant]
     Active Substance: MIDAZOLAM
     Indication: COLONOSCOPY
     Dosage: 3 MG, 1 IN 1D
     Route: 040
     Dates: start: 20190827, end: 20190827
  27. LACTULOSE. [Concomitant]
     Active Substance: LACTULOSE
     Indication: CONSTIPATION
     Dosage: 5 ML, 1 IN 1 D
     Route: 048
     Dates: start: 20200303, end: 20200303

REACTIONS (3)
  - Colonoscopy [Recovered/Resolved]
  - Product use issue [Unknown]
  - Overdose [Unknown]

NARRATIVE: CASE EVENT DATE: 20200827
